FAERS Safety Report 6834722-X (Version None)
Quarter: 2010Q3

REPORT INFORMATION
  Report Type: 
  Country: None (occurrence: None)
  Receive Date: 20100712
  Receipt Date: 20100224
  Transmission Date: 20110219
  Serious: No
  Sender: FDA-Public Use
  Company Number: US-PFIZER INC-2007034088

PATIENT
  Sex: Female
  Weight: 72.1 kg

DRUGS (11)
  1. CHANTIX [Suspect]
     Indication: SMOKING CESSATION THERAPY
     Dosage: UNK
     Route: 048
  2. CHANTIX [Suspect]
     Dosage: 1 MG, 2X/DAY
     Dates: start: 20070409
  3. NORVASC [Concomitant]
  4. SYNTHROID [Concomitant]
     Dosage: 75 UG DAILY
  5. LIPITOR [Concomitant]
     Dosage: 40 MG DAILY
  6. PROTONIX [Concomitant]
  7. BETAPACE [Concomitant]
     Dosage: 80 MG DAILY
  8. ACETYLSALICYLIC ACID [Concomitant]
     Dosage: 81 MG DAILY
  9. ADVAIR DISKUS 100/50 [Concomitant]
     Indication: ASTHMA
     Dosage: 250 / 50 MG TWICE DAILY
  10. ADVAIR DISKUS 100/50 [Concomitant]
     Dosage: FREQUENCY: 2X / DAY,
  11. CADUET [Concomitant]
     Indication: HYPERTENSION
     Dosage: UNK

REACTIONS (4)
  - ABDOMINAL PAIN UPPER [None]
  - DECREASED APPETITE [None]
  - NAUSEA [None]
  - WEIGHT DECREASED [None]
